FAERS Safety Report 10145377 (Version 1)
Quarter: 2014Q2

REPORT INFORMATION
  Report Type: Spontaneous
  Country: US (occurrence: US)
  Receive Date: 20140501
  Receipt Date: 20140501
  Transmission Date: 20141212
  Serious: No
  Sender: FDA-Public Use
  Company Number: US-BIOGENIDEC-2014BI037895

PATIENT
  Age: 36 Year
  Sex: Female

DRUGS (1)
  1. TECFIDERA [Suspect]
     Indication: MULTIPLE SCLEROSIS
     Route: 048
     Dates: start: 20131224

REACTIONS (5)
  - Hemiparesis [Unknown]
  - Hypoaesthesia [Unknown]
  - Chest pain [Unknown]
  - Skin lesion [Unknown]
  - Flushing [Recovered/Resolved]
